FAERS Safety Report 18465356 (Version 2)
Quarter: 2020Q4

REPORT INFORMATION
  Report Type: Spontaneous
  Country: JP (occurrence: JP)
  Receive Date: 20201104
  Receipt Date: 20201222
  Transmission Date: 20210114
  Serious: Yes (Other)
  Sender: FDA-Public Use
  Company Number: JP-EXELIXIS-CABO-20034491

PATIENT
  Age: 54 Year
  Sex: Male

DRUGS (8)
  1. RABEPRAZOLE SODIUM. [Concomitant]
     Active Substance: RABEPRAZOLE SODIUM
     Dosage: UNK
     Route: 065
  2. OXYCONTIN [Concomitant]
     Active Substance: OXYCODONE HYDROCHLORIDE
     Dosage: UNK
     Route: 065
  3. CABOMETYX [Suspect]
     Active Substance: CABOZANTINIB S-MALATE
     Dosage: 20 MG, QD
     Route: 048
     Dates: start: 20201022, end: 20201102
  4. RIVOTRIL [Concomitant]
     Active Substance: CLONAZEPAM
     Dosage: UNK
     Route: 065
  5. SYMPROIC [Concomitant]
     Active Substance: NALDEMEDINE
     Dosage: UNK
     Route: 065
  6. LOXOPROFEN SODIUM [Concomitant]
     Active Substance: LOXOPROFEN SODIUM
     Dosage: UNK
     Route: 065
  7. LYRICA [Concomitant]
     Active Substance: PREGABALIN
     Dosage: UNK
     Route: 065
  8. CABOMETYX [Suspect]
     Active Substance: CABOZANTINIB S-MALATE
     Indication: CLEAR CELL RENAL CELL CARCINOMA
     Dosage: 60 MG, QD
     Route: 048
     Dates: start: 20200929, end: 20201009

REACTIONS (4)
  - Fatigue [Unknown]
  - Fatigue [Recovering/Resolving]
  - Neuropathy peripheral [Unknown]
  - Decreased appetite [Recovering/Resolving]

NARRATIVE: CASE EVENT DATE: 20201008
